FAERS Safety Report 8617257-3 (Version None)
Quarter: 2012Q3

REPORT INFORMATION
  Report Type: 
  Country: None (occurrence: None)
  Receive Date: 20120823
  Receipt Date: 20120813
  Transmission Date: 20120928
  Serious: No
  Sender: FDA-Public Use
  Company Number: US-ASTRAZENECA-2012SE56888

PATIENT
  Age: 54 Year
  Sex: Female
  Weight: 76.2 kg

DRUGS (3)
  1. ACCOLATE [Suspect]
     Indication: ASTHMA
     Route: 048
  2. SYMBICORT [Concomitant]
     Indication: ASTHMA
  3. LORATADINE [Concomitant]

REACTIONS (1)
  - DRY MOUTH [None]
